FAERS Safety Report 4884980-6 (Version None)
Quarter: 2006Q1

REPORT INFORMATION
  Report Type: 
  Country: None (occurrence: None)
  Receive Date: 20060119
  Receipt Date: 20060113
  Transmission Date: 20060701
  Serious: Yes (Other)
  Sender: FDA-Public Use
  Company Number: PHBS2006CH00855

PATIENT
  Age: 48 Year
  Sex: Male

DRUGS (1)
  1. LAMISIL [Suspect]
     Indication: ONYCHOMYCOSIS
     Dosage: 250 MG/DAY
     Route: 065
     Dates: end: 20051003

REACTIONS (4)
  - COLITIS [None]
  - DIARRHOEA [None]
  - GALLBLADDER DISORDER [None]
  - HEPATIC STEATOSIS [None]
